FAERS Safety Report 25168908 (Version 2)
Quarter: 2025Q2

REPORT INFORMATION
  Report Type: Spontaneous
  Country: CN (occurrence: CN)
  Receive Date: 20250407
  Receipt Date: 20250608
  Transmission Date: 20250716
  Serious: Yes (Other)
  Sender: COHERUS
  Company Number: CN-SHANGHAI JUNSHI BIOSCIENCES CO., LTD.-CN2025013618

PATIENT

DRUGS (6)
  1. TORIPALIMAB [Suspect]
     Active Substance: TORIPALIMAB
     Indication: Tonsil cancer
  2. TORIPALIMAB [Suspect]
     Active Substance: TORIPALIMAB
     Dosage: 240MG (D1), Q3W
     Route: 041
     Dates: start: 20250206, end: 20250206
  3. PACLITAXEL [Suspect]
     Active Substance: PACLITAXEL
     Indication: Tonsil cancer
  4. PACLITAXEL [Suspect]
     Active Substance: PACLITAXEL
     Dosage: 500MG (D1), Q3W
     Route: 041
     Dates: start: 20250206, end: 20250206
  5. CISPLATIN [Suspect]
     Active Substance: CISPLATIN
     Indication: Tonsil cancer
  6. CISPLATIN [Suspect]
     Active Substance: CISPLATIN
     Dosage: 140 MG (D2), Q3W
     Route: 041
     Dates: start: 20250206, end: 20250206

REACTIONS (1)
  - Myelosuppression [Recovering/Resolving]

NARRATIVE: CASE EVENT DATE: 20250219
